FAERS Safety Report 6162635-8 (Version None)
Quarter: 2009Q2

REPORT INFORMATION
  Report Type: 
  Country: None (occurrence: None)
  Receive Date: 20090421
  Receipt Date: 20090204
  Transmission Date: 20091009
  Serious: Yes (Other)
  Sender: FDA-Public Use
  Company Number: US-ASTRAZENECA-2007UW19463

PATIENT
  Age: 60 Year
  Sex: Male
  Weight: 70.8 kg

DRUGS (9)
  1. CASODEX [Suspect]
     Indication: PROSTATE CANCER
     Route: 048
     Dates: start: 20070525
  2. CRESTOR [Concomitant]
     Route: 048
  3. EFFEXOR [Concomitant]
  4. COREG [Concomitant]
  5. PRILOSEC [Concomitant]
  6. DITROPAN [Concomitant]
  7. CLONAZEPAM [Concomitant]
  8. VITAMIN E [Concomitant]
  9. CALCIUM [Concomitant]

REACTIONS (3)
  - BLOOD GLUCOSE INCREASED [None]
  - CYSTITIS [None]
  - FATIGUE [None]
